FAERS Safety Report 22521321 (Version 2)
Quarter: 2024Q1

REPORT INFORMATION
  Report Type: Spontaneous
  Country: US (occurrence: US)
  Receive Date: 20230605
  Receipt Date: 20240108
  Transmission Date: 20240409
  Serious: No
  Sender: FDA-Public Use
  Company Number: US-PFIZER INC-202300208227

PATIENT
  Age: 68 Year
  Sex: Female
  Weight: 105.67 kg

DRUGS (3)
  1. IBRANCE [Suspect]
     Active Substance: PALBOCICLIB
     Indication: Metastases to bone
     Dosage: UNK
  2. IBRANCE [Suspect]
     Active Substance: PALBOCICLIB
     Dosage: 400 MG, DAILY
  3. FASLODEX [Concomitant]
     Active Substance: FULVESTRANT

REACTIONS (3)
  - White blood cell count increased [Unknown]
  - Tumour marker increased [Unknown]
  - Overdose [Unknown]
